FAERS Safety Report 6142147-8 (Version None)
Quarter: 2009Q2

REPORT INFORMATION
  Report Type: 
  Country: None (occurrence: None)
  Receive Date: 20090402
  Receipt Date: 20090330
  Transmission Date: 20091009
  Serious: Yes (Hospitalization)
  Sender: FDA-Public Use
  Company Number: US-MERCK-0903USA05521

PATIENT
  Age: 80 Year
  Sex: Male

DRUGS (6)
  1. JANUVIA [Suspect]
     Indication: DIABETES MELLITUS
     Route: 048
     Dates: start: 20081022, end: 20090301
  2. JANUVIA [Suspect]
     Route: 048
     Dates: start: 20090301
  3. LISINOPRIL [Concomitant]
     Route: 048
  4. LOPRESSOR [Concomitant]
     Route: 065
  5. GLYBURIDE [Concomitant]
     Route: 065
  6. WARFARIN [Concomitant]
     Route: 065

REACTIONS (2)
  - CARDIAC FAILURE CONGESTIVE [None]
  - PNEUMONIA [None]
